FAERS Safety Report 5316865-5 (Version None)
Quarter: 2007Q2

REPORT INFORMATION
  Report Type: 
  Country: None (occurrence: None)
  Receive Date: 20070504
  Receipt Date: 20070501
  Transmission Date: 20071010
  Serious: Yes (Other)
  Sender: FDA-Public Use
  Company Number: US-GLAXOSMITHKLINE-A0640487A

PATIENT
  Age: 51 Year
  Sex: Female
  Weight: 63.2 kg

DRUGS (2)
  1. SEREVENT [Suspect]
     Indication: ASTHMA EXERCISE INDUCED
     Route: 055
     Dates: start: 20030804, end: 20050624
  2. SEREVENT [Suspect]
     Route: 055
     Dates: start: 19960423, end: 20030616

REACTIONS (3)
  - ASTHMA [None]
  - FATIGUE [None]
  - GENERAL PHYSICAL HEALTH DETERIORATION [None]
